FAERS Safety Report 17219671 (Version 1)
Quarter: 2019Q4

REPORT INFORMATION
  Report Type: Spontaneous
  Country: SA (occurrence: SA)
  Receive Date: 20191231
  Receipt Date: 20191231
  Transmission Date: 20200122
  Serious: Yes (Other)
  Sender: FDA-Public Use
  Company Number: SA-AMGEN-SAUSP2019215268

PATIENT
  Age: 34 Year
  Sex: Female

DRUGS (3)
  1. LENALIDOMIDE [Concomitant]
     Active Substance: LENALIDOMIDE
     Indication: PLASMABLASTIC LYMPHOMA
     Dosage: UNK
  2. CARFILZOMIB [Suspect]
     Active Substance: CARFILZOMIB
     Indication: PLASMABLASTIC LYMPHOMA
     Dosage: UNK
     Route: 065
  3. DEXAMETHASONE. [Concomitant]
     Active Substance: DEXAMETHASONE
     Indication: PLASMABLASTIC LYMPHOMA
     Dosage: UNK, LOW-DOSE

REACTIONS (7)
  - Abdominal pain [Unknown]
  - Off label use [Unknown]
  - Mucosal inflammation [Unknown]
  - Plasmablastic lymphoma [Unknown]
  - Febrile neutropenia [Unknown]
  - Pelvic pain [Unknown]
  - Tumour pseudoprogression [Unknown]
